FAERS Safety Report 6827048-1 (Version None)
Quarter: 2010Q3

REPORT INFORMATION
  Report Type: 
  Country: None (occurrence: None)
  Receive Date: 20100709
  Receipt Date: 20100628
  Transmission Date: 20110219
  Serious: Yes (Hospitalization)
  Sender: FDA-Public Use
  Company Number: JP-MERCK-1005USA02366

PATIENT
  Age: 51 Year
  Sex: Female

DRUGS (4)
  1. MAXALT-MLT [Suspect]
     Indication: HEADACHE
     Route: 048
     Dates: start: 20100405, end: 20100425
  2. MAXALT-MLT [Suspect]
     Indication: MIGRAINE
     Route: 048
     Dates: start: 20100405, end: 20100425
  3. NEW SEDES [Concomitant]
     Route: 048
  4. DEPAKENE [Concomitant]
     Indication: HEADACHE
     Route: 048
     Dates: start: 20100405, end: 20100426

REACTIONS (2)
  - ANEURYSM [None]
  - MYOCARDIAL INFARCTION [None]
